FAERS Safety Report 5413334-9 (Version None)
Quarter: 2007Q3

REPORT INFORMATION
  Report Type: 
  Country: None (occurrence: None)
  Receive Date: 20070810
  Receipt Date: 20070801
  Transmission Date: 20080115
  Serious: Yes (Hospitalization)
  Sender: FDA-Public Use
  Company Number: 190009L07JPN

PATIENT
  Age: 26 Year
  Sex: Female

DRUGS (3)
  1. MENOTROPINS [Suspect]
     Dates: start: 20021201
  2. UROFOLLITROPIN [Suspect]
     Dates: start: 20021201
  3. CHORIONIC GONADOTROPIN [Suspect]
     Dates: start: 20021201

REACTIONS (4)
  - CEREBRAL INFARCTION [None]
  - HEMIANOPIA [None]
  - OVARIAN HYPERSTIMULATION SYNDROME [None]
  - VISUAL ACUITY REDUCED [None]
